FAERS Safety Report 16399012 (Version 3)
Quarter: 2019Q3

REPORT INFORMATION
  Report Type: Report from Study
  Country: CN (occurrence: CN)
  Receive Date: 20190606
  Receipt Date: 20190815
  Transmission Date: 20191004
  Serious: Yes (Death, Hospitalization)
  Sender: FDA-Public Use
  Company Number: CN-CELGENEUS-CHN-20190504888

PATIENT
  Age: 62 Year
  Sex: Female
  Weight: 55 kg

DRUGS (10)
  1. ESOMEPRAZOLE SODIUM. [Concomitant]
     Active Substance: ESOMEPRAZOLE SODIUM
     Indication: HAEMORRHAGE PROPHYLAXIS
     Dosage: 80 MILLIGRAM
     Route: 041
     Dates: start: 20190412, end: 20190417
  2. POTASSIUM CHLORIDE. [Concomitant]
     Active Substance: POTASSIUM CHLORIDE
     Indication: MINERAL SUPPLEMENTATION
     Dosage: 3000 MILLIGRAM
     Route: 048
     Dates: start: 20190415, end: 20190418
  3. DROTAVERINE HYDROCHLORIDE [Concomitant]
     Active Substance: DROTAVERINE HYDROCHLORIDE
     Dosage: 120 MILLIGRAM
     Route: 048
     Dates: start: 20190419, end: 20190424
  4. ESOMEPRAZOLE SODIUM. [Concomitant]
     Active Substance: ESOMEPRAZOLE SODIUM
     Indication: PROPHYLAXIS
  5. AMINOCAPROIC ACID. [Concomitant]
     Active Substance: AMINOCAPROIC ACID
     Indication: HAEMORRHAGE PROPHYLAXIS
     Dosage: 4000 MILLIGRAM
     Route: 041
     Dates: start: 20190412, end: 20190417
  6. AZACITIDINE INJECTABLE [Suspect]
     Active Substance: AZACITIDINE
     Dosage: 75 MILLIGRAM/SQ. METER
     Route: 058
     Dates: start: 20190509, end: 20190510
  7. DROTAVERINE HYDROCHLORIDE [Concomitant]
     Active Substance: DROTAVERINE HYDROCHLORIDE
     Indication: ABDOMINAL PAIN
     Dosage: 120 MILLIGRAM
     Route: 048
     Dates: start: 20190416, end: 20190418
  8. LORATADINE. [Concomitant]
     Active Substance: LORATADINE
     Indication: PROPHYLAXIS
     Dosage: 10 MILLIGRAM
     Route: 048
     Dates: start: 20190417, end: 20190417
  9. ENEMA GLYCERINI [Concomitant]
     Indication: PROPHYLAXIS
     Dosage: 20 MILLILITER
     Route: 054
     Dates: start: 20190416, end: 20190416
  10. AZACITIDINE INJECTABLE [Suspect]
     Active Substance: AZACITIDINE
     Indication: ACUTE MYELOID LEUKAEMIA
     Dosage: 75 MILLIGRAM/SQ. METER
     Route: 058
     Dates: start: 20190125, end: 20190131

REACTIONS (2)
  - Acute myocardial infarction [Fatal]
  - Appendicitis [Fatal]

NARRATIVE: CASE EVENT DATE: 20190510
